FAERS Safety Report 6901671-8 (Version None)
Quarter: 2010Q3

REPORT INFORMATION
  Report Type: 
  Country: None (occurrence: None)
  Receive Date: 20100802
  Receipt Date: 20100802
  Transmission Date: 20110219
  Serious: Yes (Death, Other)
  Sender: FDA-Public Use
  Company Number: None

PATIENT
  Age: 54 Year
  Sex: Male
  Weight: 90.2658 kg

DRUGS (1)
  1. RISPERDONE [Suspect]
     Indication: SCHIZOPHRENIA
     Dosage: RISPERDONE PILLS
     Dates: start: 19950101, end: 20081122

REACTIONS (2)
  - CARDIAC ARREST [None]
  - MULTI-ORGAN DISORDER [None]
